FAERS Safety Report 23109807 (Version 1)
Quarter: 2023Q4

REPORT INFORMATION
  Report Type: Spontaneous
  Country: US (occurrence: None)
  Receive Date: 20231026
  Receipt Date: 20231026
  Transmission Date: 20240109
  Serious: Yes (Other)
  Sender: FDA-Public Use
  Company Number: US-ENDO-CASE-0034623

PATIENT

DRUGS (10)
  1. PERCODAN [Suspect]
     Active Substance: ASPIRIN\OXYCODONE HYDROCHLORIDE
  2. PERCOCET [Suspect]
     Active Substance: ACETAMINOPHEN\OXYCODONE HYDROCHLORIDE
  3. TRAMADOL HYDROCHLORIDE [Suspect]
     Active Substance: TRAMADOL HYDROCHLORIDE
  4. ACETAMINOPHEN\HYDROCODONE BITARTRATE [Suspect]
     Active Substance: ACETAMINOPHEN\HYDROCODONE BITARTRATE
  5. DARVON [Suspect]
     Active Substance: PROPOXYPHENE HYDROCHLORIDE
  6. TORADOL [Suspect]
     Active Substance: KETOROLAC TROMETHAMINE
  7. HYDROCODONE [Suspect]
     Active Substance: HYDROCODONE
  8. CODEINE [Suspect]
     Active Substance: CODEINE
  9. ACETAMINOPHEN AND CODEINE [Suspect]
     Active Substance: ACETAMINOPHEN\CODEINE PHOSPHATE
  10. APAP [Suspect]
     Active Substance: ACETAMINOPHEN

REACTIONS (1)
  - Dependence [Unknown]
